FAERS Safety Report 18934908 (Version 1)
Quarter: 2021Q1

REPORT INFORMATION
  Report Type: Spontaneous
  Country: US (occurrence: US)
  Receive Date: 20210224
  Receipt Date: 20210224
  Transmission Date: 20210420
  Serious: No
  Sender: FDA-Public Use
  Company Number: US-TEVA-2021-US-1876318

PATIENT
  Sex: Male

DRUGS (3)
  1. AUSTEDO [Suspect]
     Active Substance: DEUTETRABENAZINE
     Dosage: 24 MILLIGRAM DAILY;
     Route: 048
  2. AUSTEDO [Suspect]
     Active Substance: DEUTETRABENAZINE
     Indication: DYSKINESIA
     Dates: start: 20200529
  3. COLACE [Concomitant]
     Active Substance: DOCUSATE SODIUM

REACTIONS (2)
  - Product use in unapproved indication [Unknown]
  - Heart rate increased [Unknown]
